FAERS Safety Report 7210336-7 (Version None)
Quarter: 2011Q1

REPORT INFORMATION
  Report Type: 
  Country: None (occurrence: None)
  Receive Date: 20110103
  Receipt Date: 20110103
  Transmission Date: 20110831
  Serious: Yes (Hospitalization)
  Sender: FDA-Public Use
  Company Number: None

PATIENT
  Age: 87 Year
  Sex: Male
  Weight: 68 kg

DRUGS (1)
  1. ENOXAPARIN [Suspect]
     Indication: ATRIAL FIBRILLATION
     Dosage: 100 MG EVERY DAY SQ
     Route: 058
     Dates: start: 20101211, end: 20101217

REACTIONS (5)
  - ANAL FISSURE [None]
  - LOWER GASTROINTESTINAL HAEMORRHAGE [None]
  - GASTROINTESTINAL ARTERIOVENOUS MALFORMATION [None]
  - COLONIC POLYP [None]
  - GASTRIC HAEMORRHAGE [None]
